FAERS Safety Report 22070328 (Version 2)
Quarter: 2023Q2

REPORT INFORMATION
  Report Type: Spontaneous
  Country: US (occurrence: US)
  Receive Date: 20230307
  Receipt Date: 20230411
  Transmission Date: 20230722
  Serious: Yes (Other)
  Sender: FDA-Public Use
  Company Number: US-PFIZER INC-202300094022

PATIENT
  Age: 54 Year
  Sex: Female
  Weight: 84.37 kg

DRUGS (1)
  1. PAXLOVID [Suspect]
     Active Substance: NIRMATRELVIR\RITONAVIR
     Indication: COVID-19 treatment
     Dosage: 3 DF (TWO EVENING DOSES AND 1 MORNING DOSE)
     Dates: start: 20230301

REACTIONS (3)
  - Dizziness [Not Recovered/Not Resolved]
  - Nightmare [Unknown]
  - Malaise [Unknown]

NARRATIVE: CASE EVENT DATE: 20230302
